FAERS Safety Report 21897934 (Version 1)
Quarter: 2023Q1

REPORT INFORMATION
  Report Type: Report from Study
  Country: EG (occurrence: EG)
  Receive Date: 20230123
  Receipt Date: 20230123
  Transmission Date: 20230418
  Serious: Yes (Hospitalization)
  Sender: FDA-Public Use
  Company Number: EG-002147023-NVSC2023EG011457

PATIENT
  Age: 15 Year
  Sex: Male

DRUGS (5)
  1. HYRIMOZ [Suspect]
     Active Substance: ADALIMUMAB-ADAZ
     Indication: Uveitis
     Dosage: 40 MG, Q2W (EVERY 15 DAY)
     Route: 065
     Dates: start: 20230105
  2. NEORAL [Concomitant]
     Active Substance: CYCLOSPORINE
     Indication: Uveitis
     Dosage: UNK (10 YEARS AGO) (100MG IN MORNING AN 50MG IN EVENING)
     Route: 065
  3. SOLUPRED [Concomitant]
     Indication: Uveitis
     Dosage: UNK, QD (DATE OF TREATMENT: 10 YEARS AGO)
     Route: 065
  4. CALCIUM [Concomitant]
     Active Substance: CALCIUM
     Indication: Uveitis
     Dosage: UNK, BID (10 YEARS AGO)
     Route: 065
  5. OSSOFORTIN [Concomitant]
     Indication: Uveitis
     Dosage: UNK, QW (4 YEARS AGO)
     Route: 065

REACTIONS (2)
  - Cataract [Recovered/Resolved]
  - Visual impairment [Recovered/Resolved]

NARRATIVE: CASE EVENT DATE: 20230115
